FAERS Safety Report 5002169-7 (Version None)
Quarter: 2006Q2

REPORT INFORMATION
  Report Type: 
  Country: None (occurrence: None)
  Receive Date: 20060510
  Receipt Date: 20060503
  Transmission Date: 20061013
  Serious: No
  Sender: FDA-Public Use
  Company Number: EM2006-0264

PATIENT
  Sex: Male

DRUGS (6)
  1. PROLEUKIN [Suspect]
     Indication: HIV INFECTION
     Dosage: 5 MU, TIW
     Dates: start: 20040101
  2. EFAVIRENZ [Concomitant]
  3. ABACAVIR [Concomitant]
  4. OXYCODONE [Concomitant]
  5. BLUE SCORPION VENOM [Concomitant]
  6. LAMIVUDINE [Concomitant]

REACTIONS (2)
  - SCAR [None]
  - URINARY TRACT OBSTRUCTION [None]
